FAERS Safety Report 17854074 (Version 3)
Quarter: 2020Q2

REPORT INFORMATION
  Report Type: Report from Study
  Country: CL (occurrence: CL)
  Receive Date: 20200603
  Receipt Date: 20200611
  Transmission Date: 20200714
  Serious: Yes (Other)
  Sender: FDA-Public Use
  Company Number: NVSC2020CL076423

PATIENT
  Age: 66 Year
  Sex: Female
  Weight: 62 kg

DRUGS (3)
  1. KISQALI [Suspect]
     Active Substance: RIBOCICLIB
     Dosage: 600 MG, QD
     Route: 048
     Dates: start: 20190726
  2. FULVESTRANT. [Suspect]
     Active Substance: FULVESTRANT
     Indication: PRODUCT USED FOR UNKNOWN INDICATION
     Dosage: UNK
     Route: 065
  3. KISQALI [Suspect]
     Active Substance: RIBOCICLIB
     Indication: BREAST CANCER
     Dosage: 3 DF
     Route: 048
     Dates: start: 201907

REACTIONS (23)
  - Bone disorder [Unknown]
  - Colitis [Unknown]
  - Mean cell volume increased [Unknown]
  - Red blood cell count decreased [Unknown]
  - Breast pain [Unknown]
  - Feeling abnormal [Unknown]
  - Swelling [Unknown]
  - Fatigue [Unknown]
  - Lymphocyte count decreased [Unknown]
  - Electrocardiogram QT prolonged [Unknown]
  - Alopecia [Unknown]
  - White blood cell count decreased [Unknown]
  - Neutrophil count decreased [Unknown]
  - Confusional state [Unknown]
  - Emotional disorder [Unknown]
  - Sinus rhythm [Unknown]
  - Amnesia [Unknown]
  - Chest pain [Unknown]
  - Insomnia [Unknown]
  - Macrocytosis [Unknown]
  - Haematocrit decreased [Unknown]
  - Dermatitis allergic [Unknown]
  - Mean cell haemoglobin increased [Unknown]

NARRATIVE: CASE EVENT DATE: 201910
